FAERS Safety Report 6716891-5 (Version None)
Quarter: 2010Q2

REPORT INFORMATION
  Report Type: 
  Country: None (occurrence: None)
  Receive Date: 20100506
  Receipt Date: 20100506
  Transmission Date: 20101027
  Serious: Yes (Life-Threatening, Other)
  Sender: FDA-Public Use
  Company Number: None

PATIENT
  Age: 69 Year
  Sex: Male
  Weight: 93 kg

DRUGS (11)
  1. IMMUNE GLOBULIN NOS [Suspect]
     Indication: GUILLAIN-BARRE SYNDROME
     Dosage: 40 GRAM DAILY 10
     Dates: start: 20100202, end: 20100206
  2. CLONIDINE [Concomitant]
  3. DOCUSATE [Concomitant]
  4. GABAPENTIN [Concomitant]
  5. ASPART [Concomitant]
  6. GLARGINE [Concomitant]
  7. LANSOPRAZOLE [Concomitant]
  8. PIPERACILLIN AND TAZOBACTAM [Concomitant]
  9. SENNA [Concomitant]
  10. SIMVASTATIN [Concomitant]
  11. TRAZODONE HCL [Concomitant]

REACTIONS (1)
  - RESPIRATORY DISTRESS [None]
